FAERS Safety Report 10430049 (Version 2)
Quarter: 2015Q1

REPORT INFORMATION
  Report Type: Report from Study
  Country: US (occurrence: US)
  Receive Date: 20140904
  Receipt Date: 20150304
  Transmission Date: 20150720
  Serious: Yes (Hospitalization)
  Sender: FDA-Public Use
  Company Number: US-SHIRE-US201405522

PATIENT
  Age: 32 Year
  Sex: Male

DRUGS (3)
  1. IDURSULFASE [Suspect]
     Active Substance: IDURSULFASE
     Indication: MUCOPOLYSACCHARIDOSIS II
     Dosage: 0.46 MG/KG, 1X/WEEK
     Route: 041
     Dates: start: 20120726
  2. OTHER THERAPEUTIC PRODUCTS [Concomitant]
     Active Substance: UNSPECIFIED INGREDIENT
     Indication: PREMEDICATION
     Dosage: UNK, 1X/WEEK
     Route: 065
     Dates: start: 20100528
  3. IDURSULFASE [Suspect]
     Active Substance: IDURSULFASE
     Dosage: 0.51 MG/KG, 1X/WEEK
     Route: 041
     Dates: start: 20100528

REACTIONS (2)
  - Gastrointestinal pain [Recovered/Resolved]
  - Infection [Recovered/Resolved]

NARRATIVE: CASE EVENT DATE: 20130626
